FAERS Safety Report 8761954 (Version 1)
Quarter: 2012Q4

REPORT INFORMATION
  Report Type: 
  Country: US (occurrence: US)
  Receive Date: 20120830
  Receipt Date: 20120830
  Transmission Date: 20130627
  Serious: No
  Sender: FDA-Public Use
  Company Number: US-009507513-1208USA010596

PATIENT

DRUGS (1)
  1. LOTRIMIN AF [Suspect]
     Indication: TINEA INFECTION
     Dosage: UNK, Unknown
     Route: 061

REACTIONS (1)
  - Skin exfoliation [Not Recovered/Not Resolved]
